FAERS Safety Report 22349276 (Version 1)
Quarter: 2023Q2

REPORT INFORMATION
  Report Type: Spontaneous
  Country: NL (occurrence: NL)
  Receive Date: 20230522
  Receipt Date: 20230522
  Transmission Date: 20230722
  Serious: Yes (Other)
  Sender: FDA-Public Use
  Company Number: None

PATIENT
  Sex: Female
  Weight: 116 kg

DRUGS (4)
  1. APIXABAN [Suspect]
     Active Substance: APIXABAN
     Indication: Thrombophlebitis
     Dosage: 2X PER DAY, STRENGTH: TABLET 5 MG
     Dates: start: 20230322, end: 20230323
  2. FLUTICASONE [Concomitant]
     Active Substance: FLUTICASONE
     Dosage: POWDER FOR INHALATION, 100 (MICROGRAMS PER DOSE), STRENGTH:  POWDER FOR INHALATION 100 MCG 60 DO
  3. INFLIXIMAB [Concomitant]
     Active Substance: INFLIXIMAB
     Dosage: SOLUTION FOR INFUSION, 100 MG, STRENGTH: POWDER FOR INFUSION VIAL 100?MG
  4. EBASTINE [Concomitant]
     Active Substance: EBASTINE
     Dosage: TABLET, 5 MG, STRENGTH: FILM-COATED TABLET 5 MG

REACTIONS (4)
  - Palpitations [Unknown]
  - Atrial fibrillation [Recovered/Resolved]
  - Feeling jittery [Recovered/Resolved]
  - Tachycardia [Unknown]
